FAERS Safety Report 9459950 (Version 2)
Quarter: 2013Q3

REPORT INFORMATION
  Report Type: Spontaneous
  Country: DE (occurrence: DE)
  Receive Date: 20130815
  Receipt Date: 20130819
  Transmission Date: 20140515
  Serious: Yes (Other)
  Sender: FDA-Public Use
  Company Number: DE-TEVA-425586USA

PATIENT
  Age: 75 Year
  Sex: Female

DRUGS (1)
  1. BENDAMUSTINE [Suspect]
     Indication: CHRONIC LYMPHOCYTIC LEUKAEMIA
     Route: 042

REACTIONS (4)
  - Full blood count increased [Unknown]
  - Skin exfoliation [Unknown]
  - Skin reaction [Unknown]
  - Dyspnoea [Unknown]
